FAERS Safety Report 6504565-5 (Version None)
Quarter: 2009Q4

REPORT INFORMATION
  Report Type: 
  Country: None (occurrence: None)
  Receive Date: 20091215
  Receipt Date: 20091210
  Transmission Date: 20100525
  Serious: Yes (Hospitalization)
  Sender: FDA-Public Use
  Company Number: 1000010746

PATIENT
  Sex: Male

DRUGS (1)
  1. SAVELLA [Suspect]

REACTIONS (2)
  - BRADYCARDIA [None]
  - SYNCOPE [None]
